FAERS Safety Report 8914928 (Version 1)
Quarter: 2012Q4

REPORT INFORMATION
  Report Type: 
  Country: AT (occurrence: AT)
  Receive Date: 20121119
  Receipt Date: 20121119
  Transmission Date: 20130627
  Serious: Yes (Other)
  Sender: FDA-Public Use
  Company Number: AT-ELI_LILLY_AND_COMPANY-AT201211002857

PATIENT
  Age: 54 Year
  Sex: Male
  Weight: 86 kg

DRUGS (5)
  1. ALIMTA [Suspect]
     Indication: BRONCHIAL CARCINOMA
     Dosage: 500 mg/m2, UNK
     Dates: start: 201207, end: 201210
  2. CISPLATIN [Concomitant]
     Indication: BRONCHIAL CARCINOMA
     Dosage: 75 mg/m2, UNK
     Dates: start: 201207, end: 201210
  3. FOLSAEURE [Concomitant]
     Dosage: 0.4 mg, UNK
     Dates: start: 201207, end: 201210
  4. VITAMIN B12 [Concomitant]
     Dosage: 1 mg, UNK
     Dates: start: 201207, end: 201210
  5. AREDIA [Concomitant]
     Indication: METASTASES TO BONE
     Dosage: 90 mg, UNK
     Dates: start: 201207, end: 201210

REACTIONS (1)
  - Skin discolouration [Not Recovered/Not Resolved]
